FAERS Safety Report 7834919-6 (Version None)
Quarter: 2011Q4

REPORT INFORMATION
  Report Type: 
  Country: None (occurrence: None)
  Receive Date: 20111024
  Receipt Date: 20111019
  Transmission Date: 20120403
  Serious: Yes (Other)
  Sender: FDA-Public Use
  Company Number: US-JNJFOC-20111008617

PATIENT
  Sex: Female
  Weight: 72.58 kg

DRUGS (3)
  1. DOXORUBICIN HCL [Suspect]
     Route: 042
  2. DOXORUBICIN HCL [Suspect]
     Indication: BREAST CANCER STAGE IV
     Route: 042
  3. DOXORUBICIN HCL [Suspect]
     Route: 042
     Dates: start: 20110201

REACTIONS (2)
  - PAIN [None]
  - BREAST CANCER RECURRENT [None]
